FAERS Safety Report 21534188 (Version 3)
Quarter: 2023Q1

REPORT INFORMATION
  Report Type: Report from Study
  Country: US (occurrence: US)
  Receive Date: 20221101
  Receipt Date: 20230105
  Transmission Date: 20230417
  Serious: Yes (Other)
  Sender: FDA-Public Use
  Company Number: US-ABBVIE-4182941

PATIENT
  Age: 33 Year
  Sex: Male

DRUGS (2)
  1. RINVOQ [Suspect]
     Active Substance: UPADACITINIB
     Indication: Crohn^s disease
     Dosage: STRENGTH: 15 MG?LAST ADMIN DATE- 2022?ER
     Route: 048
     Dates: start: 20201006
  2. RINVOQ [Suspect]
     Active Substance: UPADACITINIB
     Indication: Crohn^s disease
     Dosage: STRENGTH: 15 MG
     Route: 048
     Dates: start: 2022

REACTIONS (4)
  - Hip arthroplasty [Unknown]
  - Genital infection fungal [Unknown]
  - Acne [Unknown]
  - Tooth loss [Unknown]

NARRATIVE: CASE EVENT DATE: 20220720
